FAERS Safety Report 19381501 (Version 1)
Quarter: 2021Q2

REPORT INFORMATION
  Report Type: Spontaneous
  Country: US (occurrence: US)
  Receive Date: 20210607
  Receipt Date: 20210607
  Transmission Date: 20210717
  Serious: Yes (Other)
  Sender: FDA-Public Use
  Company Number: US-APOTEX-2021AP013259

PATIENT
  Age: 57 Year
  Sex: Male
  Weight: 71.2 kg

DRUGS (1)
  1. METFORMIN [Suspect]
     Active Substance: METFORMIN HYDROCHLORIDE
     Indication: HYPERGLYCAEMIA
     Dosage: UNK (CONCENTRATIONS WERE 5.3 MG/DL AND 4.3 MG/DL (REF 1?2 MG/DL))
     Route: 065

REACTIONS (5)
  - Acute kidney injury [Unknown]
  - Haemodynamic instability [Unknown]
  - Circulatory collapse [Unknown]
  - Lactic acidosis [Unknown]
  - Drug level increased [Unknown]
